FAERS Safety Report 8393118-2 (Version None)
Quarter: 2012Q2

REPORT INFORMATION
  Report Type: 
  Country: None (occurrence: None)
  Receive Date: 20120529
  Receipt Date: 20120514
  Transmission Date: 20120825
  Serious: No
  Sender: FDA-Public Use
  Company Number: US-ABBOTT-12P-163-0926435-00

PATIENT
  Sex: Male
  Weight: 86.714 kg

DRUGS (8)
  1. LIPITOR [Concomitant]
     Indication: ARTERIOSCLEROSIS
  2. FLOMAX [Concomitant]
     Indication: DYSURIA
  3. LISINOPRIL AND HYDROCHLOROTHIAZIDE [Concomitant]
     Indication: HYPERTENSION
  4. ANDROGEL [Suspect]
     Indication: BLOOD TESTOSTERONE DECREASED
     Dates: start: 20120313, end: 20120501
  5. LIPITOR [Concomitant]
     Indication: CARDIOVASCULAR EVENT PROPHYLAXIS
  6. ALLEGRA [Concomitant]
     Indication: HYPERSENSITIVITY
  7. LISINOPRIL [Concomitant]
     Indication: HYPERTENSION
  8. CELEBREX [Concomitant]
     Indication: PAIN

REACTIONS (2)
  - MUSCULOSKELETAL PAIN [None]
  - MYALGIA [None]
